FAERS Safety Report 4874690-3 (Version None)
Quarter: 2006Q1

REPORT INFORMATION
  Report Type: 
  Country: None (occurrence: None)
  Receive Date: 20060106
  Receipt Date: 20051118
  Transmission Date: 20060701
  Serious: Yes (Other)
  Sender: FDA-Public Use
  Company Number: FR-MERCK-0511FRA00098

PATIENT
  Sex: Female

DRUGS (4)
  1. CRIXIVAN [Suspect]
     Indication: PROPHYLAXIS AGAINST HIV INFECTION
     Route: 048
     Dates: start: 19970101, end: 19970101
  2. LAMIVUDINE [Suspect]
     Indication: PROPHYLAXIS AGAINST HIV INFECTION
     Route: 048
     Dates: start: 19970101, end: 19970101
  3. ZIDOVUDINE [Suspect]
     Indication: PROPHYLAXIS AGAINST HIV INFECTION
     Route: 048
     Dates: start: 19970101, end: 19970101
  4. STAVUDINE [Suspect]
     Indication: PROPHYLAXIS AGAINST HIV INFECTION
     Route: 048
     Dates: start: 19970101, end: 19970101

REACTIONS (2)
  - HIV TEST POSITIVE [None]
  - THERAPY NON-RESPONDER [None]
